FAERS Safety Report 4897458-0 (Version None)
Quarter: 2006Q1

REPORT INFORMATION
  Report Type: 
  Country: None (occurrence: None)
  Receive Date: 20060201
  Receipt Date: 20060123
  Transmission Date: 20060701
  Serious: Yes (Hospitalization, Other)
  Sender: FDA-Public Use
  Company Number: GB-JNJFOC-20060104447

PATIENT
  Sex: Female
  Weight: 54 kg

DRUGS (8)
  1. REMICADE [Suspect]
     Indication: RHEUMATOID ARTHRITIS
     Route: 042
  2. METHOTREXATE [Concomitant]
  3. PREDNISOLONE [Concomitant]
  4. ALENDRONATE SODIUM [Concomitant]
  5. CITALOPRAM HYDROBROMIDE [Concomitant]
  6. DIAZEPAM [Concomitant]
  7. DICLOFENAC [Concomitant]
  8. LANSOPRAZOLE [Concomitant]

REACTIONS (1)
  - LUMBAR SPINAL STENOSIS [None]
